FAERS Safety Report 6851635-8 (Version None)
Quarter: 2010Q3

REPORT INFORMATION
  Report Type: 
  Country: None (occurrence: None)
  Receive Date: 20100717
  Receipt Date: 20090408
  Transmission Date: 20110219
  Serious: Yes (Other)
  Sender: FDA-Public Use
  Company Number: US-PFIZER INC-2008006047

PATIENT
  Sex: Female
  Weight: 70.454 kg

DRUGS (1)
  1. CHANTIX [Suspect]
     Indication: SMOKING CESSATION THERAPY
     Route: 048
     Dates: start: 20080105, end: 20080114

REACTIONS (12)
  - ABNORMAL DREAMS [None]
  - ANXIETY [None]
  - CHEST PAIN [None]
  - CHILLS [None]
  - DEPRESSION [None]
  - DYSGEUSIA [None]
  - MEMORY IMPAIRMENT [None]
  - MOOD SWINGS [None]
  - NERVOUSNESS [None]
  - SINUS DISORDER [None]
  - SUICIDAL IDEATION [None]
  - THINKING ABNORMAL [None]
